FAERS Safety Report 22359926 (Version 2)
Quarter: 2024Q2

REPORT INFORMATION
  Report Type: Spontaneous
  Country: US (occurrence: US)
  Receive Date: 20230524
  Receipt Date: 20240603
  Transmission Date: 20240716
  Serious: No
  Sender: FDA-Public Use
  Company Number: US-SA-SAC20230523001307

PATIENT
  Age: 7 Year
  Sex: Male

DRUGS (6)
  1. ELOCTATE [Suspect]
     Active Substance: EFMOROCTOCOG ALFA
     Indication: Factor VIII deficiency
     Dosage: 1000 U, BIW
     Route: 042
     Dates: start: 202103
  2. ELOCTATE [Suspect]
     Active Substance: EFMOROCTOCOG ALFA
     Indication: Factor VIII deficiency
     Dosage: 1000 U, BIW
     Route: 042
     Dates: start: 202103
  3. ELOCTATE [Suspect]
     Active Substance: EFMOROCTOCOG ALFA
     Dosage: 1350 U, BIW
     Route: 042
     Dates: start: 202211
  4. ELOCTATE [Suspect]
     Active Substance: EFMOROCTOCOG ALFA
     Dosage: 1350 U, BIW
     Route: 042
     Dates: start: 202211
  5. ELOCTATE [Suspect]
     Active Substance: EFMOROCTOCOG ALFA
     Dosage: 1350 U, PRN
     Route: 042
     Dates: start: 202211
  6. ELOCTATE [Suspect]
     Active Substance: EFMOROCTOCOG ALFA
     Dosage: 1350 U, PRN
     Route: 042
     Dates: start: 202211

REACTIONS (2)
  - Illness [Unknown]
  - Hand fracture [Unknown]

NARRATIVE: CASE EVENT DATE: 20230501
